FAERS Safety Report 7107340-6 (Version None)
Quarter: 2010Q4

REPORT INFORMATION
  Report Type: 
  Country: None (occurrence: None)
  Receive Date: 20101112
  Receipt Date: 20101112
  Transmission Date: 20110411
  Serious: No
  Sender: FDA-Public Use
  Company Number: None

PATIENT
  Age: 522 Month
  Sex: Male
  Weight: 96.8 kg

DRUGS (1)
  1. OXYCONTIN [Suspect]
     Indication: JOINT INJURY
     Dosage: 80MG 3X A DAY PO
     Route: 048
     Dates: start: 20100901, end: 20101110

REACTIONS (5)
  - ABDOMINAL PAIN UPPER [None]
  - DRUG INEFFECTIVE [None]
  - HEADACHE [None]
  - MEDICATION RESIDUE [None]
  - PRODUCT FORMULATION ISSUE [None]
